FAERS Safety Report 5417889-X (Version None)
Quarter: 2007Q3

REPORT INFORMATION
  Report Type: 
  Country: None (occurrence: None)
  Receive Date: 20070815
  Receipt Date: 20070806
  Transmission Date: 20080115
  Serious: Yes (Other)
  Sender: FDA-Public Use
  Company Number: B0483103A

PATIENT
  Sex: 0

DRUGS (2)
  1. FLUTICASONE PROPIONATE [Suspect]
     Dosage: INHALED
     Route: 055
  2. TRIAMCINOLONE ACETONIDE (FORMULATION UNKNOWN) (TRIAMCINOLONE ACETONIDE [Suspect]
     Dosage: INTRANASAL
     Route: 045

REACTIONS (1)
  - OSTEONECROSIS [None]
